FAERS Safety Report 7269143-1 (Version None)
Quarter: 2011Q1

REPORT INFORMATION
  Report Type: 
  Country: None (occurrence: None)
  Receive Date: 20110202
  Receipt Date: 20090702
  Transmission Date: 20110831
  Serious: No
  Sender: FDA-Public Use
  Company Number: 2009BI012490

PATIENT
  Age: 58 Year
  Sex: Female

DRUGS (1)
  1. TYSABRI [Suspect]
     Indication: MULTIPLE SCLEROSIS
     Route: 042
     Dates: start: 20090311

REACTIONS (5)
  - OEDEMA PERIPHERAL [None]
  - PAIN [None]
  - CRYING [None]
  - MEMORY IMPAIRMENT [None]
  - JOINT SWELLING [None]
